FAERS Safety Report 6975344-X (Version None)
Quarter: 2010Q3

REPORT INFORMATION
  Report Type: 
  Country: None (occurrence: None)
  Receive Date: 20100910
  Receipt Date: 20090316
  Transmission Date: 20110219
  Serious: No
  Sender: FDA-Public Use
  Company Number: US-WYE-H08615109

PATIENT
  Sex: Female
  Weight: 68.1 kg

DRUGS (4)
  1. PRISTIQ [Suspect]
     Indication: DEPRESSION
     Route: 048
     Dates: start: 20090216
  2. XANAX [Concomitant]
  3. LAMICTAL [Concomitant]
  4. PROZAC [Concomitant]

REACTIONS (1)
  - MENORRHAGIA [None]
